FAERS Safety Report 11558149 (Version 1)
Quarter: 2015Q3

REPORT INFORMATION
  Report Type: Spontaneous
  Country: US (occurrence: None)
  Receive Date: 20150925
  Receipt Date: 20150925
  Transmission Date: 20151125
  Serious: Yes (Hospitalization, Other)
  Sender: FDA-Public Use
  Company Number: None

PATIENT
  Age: 26 Year
  Sex: Male
  Weight: 49.9 kg

DRUGS (3)
  1. LATUDA [Concomitant]
     Active Substance: LURASIDONE HYDROCHLORIDE
  2. LATUDA [Suspect]
     Active Substance: LURASIDONE HYDROCHLORIDE
     Indication: AUTISM
     Dosage: AT BEDTIME, TAKEN BY MOUTH
     Dates: start: 20150206, end: 20150923
  3. ZYPREXA [Concomitant]
     Active Substance: OLANZAPINE

REACTIONS (6)
  - Amnesia [None]
  - Confusional state [None]
  - Palpitations [None]
  - Incoherent [None]
  - Dizziness [None]
  - Musculoskeletal stiffness [None]

NARRATIVE: CASE EVENT DATE: 20150924
